FAERS Safety Report 6164636 (Version 4)
Quarter: 2017Q1

REPORT INFORMATION
  Report Type: Spontaneous
  Country: JP (occurrence: JP)
  Receive Date: 20061109
  Receipt Date: 20170228
  Transmission Date: 20170429
  Serious: Yes (Death, Hospitalization, Disabling, Other)
  Sender: FDA-Public Use
  Company Number: JP-BRISTOL-MYERS SQUIBB COMPANY-13568746

PATIENT
  Age: 61 Year
  Sex: Female

DRUGS (5)
  1. TAXOL [Suspect]
     Active Substance: PACLITAXEL
     Indication: OVARIAN EPITHELIAL CANCER
     Dosage: 21-SEP-2006 TO 21-SEP-2006 DRUG WAS ADMINISTRATED.
     Route: 041
     Dates: start: 20061019, end: 20061019
  2. LEVODOPA + BENSERAZIDE HCL [Concomitant]
     Indication: PRODUCT USED FOR UNKNOWN INDICATION
     Dosage: 50 MG, TID
     Route: 048
  3. ARTANE [Concomitant]
     Active Substance: TRIHEXYPHENIDYL HYDROCHLORIDE
     Indication: PRODUCT USED FOR UNKNOWN INDICATION
     Dosage: 1.3 MG, TID
     Route: 048
  4. CABASER [Concomitant]
     Active Substance: CABERGOLINE
     Indication: PRODUCT USED FOR UNKNOWN INDICATION
     Dosage: 1 MG, BID
     Route: 048
  5. PARAPLATIN [Suspect]
     Active Substance: CARBOPLATIN
     Indication: OVARIAN CANCER
     Dosage: 21SEP2006 TO 21SEP2006 DRUG WAS ADMINISTRATED
     Route: 041
     Dates: start: 20061019, end: 20061019

REACTIONS (3)
  - Malignant neoplasm progression [Fatal]
  - Cerebral infarction [Recovering/Resolving]
  - Inappropriate antidiuretic hormone secretion [Not Recovered/Not Resolved]

NARRATIVE: CASE EVENT DATE: 20061023
